FAERS Safety Report 7782962-8 (Version None)
Quarter: 2011Q3

REPORT INFORMATION
  Report Type: 
  Country: None (occurrence: None)
  Receive Date: 20110928
  Receipt Date: 20110914
  Transmission Date: 20111222
  Serious: Yes (Hospitalization)
  Sender: FDA-Public Use
  Company Number: HR-MYLANLABS-2011S1019690

PATIENT
  Age: 62 Year
  Sex: Female

DRUGS (9)
  1. DIOVAN HCT [Concomitant]
     Route: 065
  2. ATORVASTATIN [Concomitant]
     Route: 065
  3. WARFARIN [Concomitant]
     Route: 065
  4. FENTANYL [Suspect]
     Indication: KNEE ARTHROPLASTY
     Route: 065
  5. ISOSORBIDE MONONITRATE [Concomitant]
     Route: 065
  6. LACIDIPINE [Concomitant]
     Route: 065
  7. BUPIVACAINE HCL [Concomitant]
     Indication: KNEE ARTHROPLASTY
     Route: 065
  8. LEVOTHYROXINE SODIUM [Concomitant]
     Route: 065
  9. METFORMIN HCL [Concomitant]
     Route: 065

REACTIONS (6)
  - INSOMNIA [None]
  - AGGRESSION [None]
  - AGITATION [None]
  - MANIA [None]
  - PSYCHOMOTOR HYPERACTIVITY [None]
  - TREATMENT NONCOMPLIANCE [None]
